FAERS Safety Report 9308649 (Version 1)
Quarter: 2013Q2

REPORT INFORMATION
  Report Type: Spontaneous
  Country: IR (occurrence: IR)
  Receive Date: 20130524
  Receipt Date: 20130524
  Transmission Date: 20140414
  Serious: Yes (Other)
  Sender: FDA-Public Use
  Company Number: IR-EISAI INC-E2020-12366-SPO-IR

PATIENT
  Age: 63 Year
  Sex: Male

DRUGS (2)
  1. DONEPEZIL [Suspect]
     Indication: DEMENTIA ALZHEIMER^S TYPE
     Dosage: UNKNOWN
     Route: 048
  2. DONEPEZIL [Suspect]
     Route: 048

REACTIONS (1)
  - Delirium [Recovered/Resolved]
